FAERS Safety Report 14921835 (Version 1)
Quarter: 2018Q2

REPORT INFORMATION
  Report Type: Spontaneous
  Country: FR (occurrence: FR)
  Receive Date: 20180522
  Receipt Date: 20180522
  Transmission Date: 20180711
  Serious: Yes (Other)
  Sender: FDA-Public Use
  Company Number: FR-MERCK KGAA-2048204

PATIENT
  Age: 52 Year
  Sex: Female
  Weight: 52.5 kg

DRUGS (2)
  1. NOVOTHYROX [Suspect]
     Active Substance: LEVOTHYROXINE SODIUM
     Dates: start: 201707
  2. NOVOTHYROX [Suspect]
     Active Substance: LEVOTHYROXINE SODIUM
     Indication: HYPOTHYROIDISM
     Route: 048
     Dates: start: 201701, end: 201707

REACTIONS (31)
  - Fatigue [Not Recovered/Not Resolved]
  - Gastrooesophageal reflux disease [Not Recovered/Not Resolved]
  - Drug intolerance [Not Recovered/Not Resolved]
  - Irritable bowel syndrome [Not Recovered/Not Resolved]
  - Tachycardia [Not Recovered/Not Resolved]
  - Decreased activity [Recovered/Resolved]
  - Psychiatric symptom [None]
  - Anti-thyroid antibody positive [None]
  - Gastrointestinal disorder [Not Recovered/Not Resolved]
  - Amnesia [None]
  - Constipation [Not Recovered/Not Resolved]
  - Disturbance in attention [None]
  - Depressed mood [None]
  - Headache [Not Recovered/Not Resolved]
  - Back pain [Not Recovered/Not Resolved]
  - Depression [None]
  - Diarrhoea [Not Recovered/Not Resolved]
  - Irritability [None]
  - Social problem [Recovered/Resolved]
  - Crying [None]
  - Insomnia [Not Recovered/Not Resolved]
  - Pain in extremity [Not Recovered/Not Resolved]
  - Vertigo [Not Recovered/Not Resolved]
  - Impaired work ability [None]
  - Mood swings [None]
  - Arrhythmia [None]
  - Arthralgia [Not Recovered/Not Resolved]
  - Myalgia [Not Recovered/Not Resolved]
  - Pain [None]
  - Blood thyroid stimulating hormone increased [Recovered/Resolved]
  - Sleep disorder [None]

NARRATIVE: CASE EVENT DATE: 20170130
